FAERS Safety Report 4988794-8 (Version None)
Quarter: 2006Q2

REPORT INFORMATION
  Report Type: 
  Country: None (occurrence: None)
  Receive Date: 20060502
  Receipt Date: 20060421
  Transmission Date: 20061013
  Serious: Yes (Life-Threatening, Hospitalization)
  Sender: FDA-Public Use
  Company Number: JP-MERCK-0604USA03815

PATIENT
  Age: 78 Year
  Sex: Female

DRUGS (3)
  1. STROMECTOL [Suspect]
     Route: 048
  2. ZITHROMAC [Concomitant]
     Route: 048
  3. ALESION [Concomitant]
     Route: 048

REACTIONS (1)
  - LIVER DISORDER [None]
